FAERS Safety Report 4622824-8 (Version None)
Quarter: 2005Q1

REPORT INFORMATION
  Report Type: 
  Country: None (occurrence: None)
  Receive Date: 20050329
  Receipt Date: 20050329
  Transmission Date: 20050727
  Serious: Yes (Other)
  Sender: FDA-Public Use
  Company Number: None

PATIENT
  Age: 44 Year
  Sex: Female
  Weight: 66.6788 kg

DRUGS (1)
  1. BROMO CRIPTIN [Suspect]
     Indication: PROLACTINOMA
     Dosage: 2.5 MG BID
     Dates: start: 20050312

REACTIONS (1)
  - HEADACHE [None]
